FAERS Safety Report 16839945 (Version 1)
Quarter: 2019Q3

REPORT INFORMATION
  Report Type: Spontaneous
  Country: US (occurrence: US)
  Receive Date: 20190801
  Receipt Date: 20190801
  Transmission Date: 20191005
  Serious: No
  Sender: FDA-Public Use
  Company Number: None

PATIENT

DRUGS (2)
  1. IBRANCE [Suspect]
     Active Substance: PALBOCICLIB
     Indication: BREAST CANCER
     Dosage: ?          OTHER FREQUENCY:DAILYFOR21DAYS;?
     Route: 048
     Dates: start: 201902
  2. LETROZOLE. [Suspect]
     Active Substance: LETROZOLE

REACTIONS (5)
  - Platelet count decreased [None]
  - Haemoglobin decreased [None]
  - Thrombosis [None]
  - Haematocrit decreased [None]
  - White blood cell count decreased [None]

NARRATIVE: CASE EVENT DATE: 20190730
